FAERS Safety Report 23971966 (Version 1)
Quarter: 2024Q2

REPORT INFORMATION
  Report Type: Spontaneous
  Country: US (occurrence: US)
  Receive Date: 20240613
  Receipt Date: 20240613
  Transmission Date: 20240716
  Serious: Yes (Other)
  Sender: FDA-Public Use
  Company Number: US-ABBVIE-5792812

PATIENT
  Sex: Male
  Weight: 68.492 kg

DRUGS (7)
  1. IMBRUVICA [Suspect]
     Active Substance: IBRUTINIB
     Indication: Chronic lymphocytic leukaemia
     Dosage: 420 MILLIGRAM
     Route: 048
     Dates: start: 2018
  2. COVID-19 VACCINE NOS [Suspect]
     Active Substance: COVID-19 VACCINE
     Indication: COVID-19 immunisation
     Route: 030
  3. BENADRYL [Concomitant]
     Active Substance: DIPHENHYDRAMINE HYDROCHLORIDE
     Indication: Urticaria
  4. ACYCLOVIR [Concomitant]
     Active Substance: ACYCLOVIR
     Indication: Herpes zoster
  5. LISINOPRIL [Concomitant]
     Active Substance: LISINOPRIL
     Indication: Hypertension
  6. METFORMIN [Concomitant]
     Active Substance: METFORMIN HYDROCHLORIDE
     Indication: Diabetes mellitus
  7. PRAVASTATIN [Concomitant]
     Active Substance: PRAVASTATIN
     Indication: Blood cholesterol increased

REACTIONS (15)
  - B-cell small lymphocytic lymphoma [Unknown]
  - Infection [Unknown]
  - Ophthalmic herpes zoster [Not Recovered/Not Resolved]
  - Urinary tract infection [Unknown]
  - Unevaluable event [Unknown]
  - Vitreous floaters [Not Recovered/Not Resolved]
  - Blood glucose increased [Not Recovered/Not Resolved]
  - Photopsia [Not Recovered/Not Resolved]
  - Arthralgia [Unknown]
  - Type 2 diabetes mellitus [Not Recovered/Not Resolved]
  - Myalgia [Not Recovered/Not Resolved]
  - COVID-19 [Recovered/Resolved]
  - Allergy to vaccine [Not Recovered/Not Resolved]
  - Urticaria [Recovering/Resolving]
  - Blood cholesterol increased [Unknown]

NARRATIVE: CASE EVENT DATE: 20180101
